FAERS Safety Report 7467645-6 (Version None)
Quarter: 2011Q2

REPORT INFORMATION
  Report Type: 
  Country: None (occurrence: None)
  Receive Date: 20110509
  Receipt Date: 20110504
  Transmission Date: 20111010
  Serious: Yes (Other)
  Sender: FDA-Public Use
  Company Number: US-PFIZER INC-2011022199

PATIENT
  Sex: Female
  Weight: 88 kg

DRUGS (6)
  1. COZAAR [Concomitant]
     Indication: HYPERTENSION
     Dosage: 50 MG, 1X/DAY
     Route: 048
  2. CHANTIX [Suspect]
     Indication: SMOKING CESSATION THERAPY
     Dosage: 0.5 MG, 1X/DAY
     Route: 048
     Dates: start: 20110201
  3. LANTUS [Concomitant]
     Indication: DIABETES MELLITUS
     Dosage: 56 IU, 1X/DAY
  4. CHANTIX [Suspect]
     Dosage: 1 MG, 2X/DAY
     Dates: start: 20110101
  5. DYAZIDE [Concomitant]
     Indication: HYPERTENSION
     Dosage: 37.5 MG, 1X/DAY
     Route: 048
  6. CHANTIX [Suspect]
     Dosage: UNK
     Dates: end: 20110421

REACTIONS (1)
  - GLYCOSYLATED HAEMOGLOBIN INCREASED [None]
